FAERS Safety Report 23571423 (Version 2)
Quarter: 2024Q1

REPORT INFORMATION
  Report Type: Report from Study
  Country: AU (occurrence: AU)
  Receive Date: 20240227
  Receipt Date: 20240306
  Transmission Date: 20240410
  Serious: Yes (Hospitalization)
  Sender: FDA-Public Use
  Company Number: AU-PFIZER INC-PV202400025513

PATIENT
  Age: 77 Year
  Sex: Female
  Weight: 83 kg

DRUGS (5)
  1. RITUXIMAB [Suspect]
     Active Substance: RITUXIMAB
     Indication: Follicular lymphoma
     Dosage: 375 MG/M2 (690 MG) FOR 5 CYCLES
     Route: 042
     Dates: start: 20230308
  2. SPIRONOLACTONE [Suspect]
     Active Substance: SPIRONOLACTONE
  3. INVESTIGATIONAL PRODUCT [Suspect]
     Active Substance: INVESTIGATIONAL PRODUCT
     Indication: Follicular lymphoma
     Dosage: UNK
     Route: 042
     Dates: start: 20230307
  4. LENALIDOMIDE [Suspect]
     Active Substance: LENALIDOMIDE
     Indication: Follicular lymphoma
     Dosage: 20 MG, QD ON DAYS 1 TO 21 FOR 12 CYCLES
     Route: 048
     Dates: start: 20230307
  5. ENTRESTO [Suspect]
     Active Substance: SACUBITRIL\VALSARTAN

REACTIONS (1)
  - Acute kidney injury [Recovered/Resolved]

NARRATIVE: CASE EVENT DATE: 20231201
